FAERS Safety Report 5625853-0 (Version None)
Quarter: 2008Q1

REPORT INFORMATION
  Report Type: 
  Country: None (occurrence: None)
  Receive Date: 20080211
  Receipt Date: 20071123
  Transmission Date: 20080703
  Serious: Yes (Life-Threatening)
  Sender: FDA-Public Use
  Company Number: 2007S1012352

PATIENT
  Sex: Male

DRUGS (1)
  1. ALPRAZOLAM [Suspect]
     Indication: DRUG USE FOR UNKNOWN INDICATION

REACTIONS (2)
  - COOMBS POSITIVE HAEMOLYTIC ANAEMIA [None]
  - THROMBOCYTOPENIA [None]
